FAERS Safety Report 8100687-6 (Version None)
Quarter: 2012Q1

REPORT INFORMATION
  Report Type: 
  Country: None (occurrence: None)
  Receive Date: 20120129
  Receipt Date: 20111103
  Transmission Date: 20120608
  Serious: No
  Sender: FDA-Public Use
  Company Number: US-ABBOTT-11P-163-0729034-00

PATIENT
  Sex: Male
  Weight: 63.56 kg

DRUGS (15)
  1. DIOVAN [Concomitant]
     Indication: HYPERTENSION
  2. LOVASTATIN [Concomitant]
  3. ACETAMINOPHEN [Concomitant]
     Indication: PAIN
  4. BENADRYL [Concomitant]
     Indication: PRURITUS
     Dosage: PRN
  5. LOVASTATIN [Concomitant]
     Indication: BLOOD CHOLESTEROL INCREASED
     Dosage: WITH EVENING MEAL
  6. CYMBALTA [Concomitant]
     Indication: DEPRESSION
  7. IBUPROFEN [Concomitant]
     Indication: HEADACHE
     Dosage: PRN
  8. IBUPROFEN [Concomitant]
     Indication: PAIN
  9. HUMIRA [Suspect]
     Indication: PSORIASIS
     Dates: start: 20110401
  10. HUMIRA [Suspect]
     Dates: start: 20110512, end: 20110512
  11. CYMBALTA [Concomitant]
     Indication: ANXIETY
  12. HUMIRA [Suspect]
     Dates: start: 20110519
  13. METFORMIN HCL [Concomitant]
     Indication: TYPE 2 DIABETES MELLITUS
     Dosage: 2 TABS IN AM AND 2 TABS IN PM
  14. DIPYRIDAMOLE [Concomitant]
     Indication: BLOOD CHOLESTEROL INCREASED
  15. ACETAMINOPHEN [Concomitant]
     Indication: HEADACHE
     Dosage: PRN

REACTIONS (9)
  - DERMATITIS [None]
  - DERMATITIS PSORIASIFORM [None]
  - CONTUSION [None]
  - ACNE PUSTULAR [None]
  - ACNE [None]
  - RASH PAPULAR [None]
  - CHILLS [None]
  - PRURITUS [None]
  - SCRATCH [None]
